FAERS Safety Report 9761923 (Version 2)
Quarter: 2013Q4

REPORT INFORMATION
  Report Type: Spontaneous
  Country: US (occurrence: US)
  Receive Date: 20131216
  Receipt Date: 20131220
  Transmission Date: 20140711
  Serious: No
  Sender: FDA-Public Use
  Company Number: US-BIOGENIDEC-2013BI105410

PATIENT
  Age: 43 Year
  Sex: Female
  Weight: 56 kg

DRUGS (12)
  1. TECFIDERA [Suspect]
     Indication: PRODUCT USED FOR UNKNOWN INDICATION
     Route: 048
  2. TECFIDERA [Suspect]
     Indication: PRODUCT USED FOR UNKNOWN INDICATION
     Route: 048
  3. TOFRANIL [Concomitant]
  4. CLONAZEPAM [Concomitant]
  5. LORAZEPAM [Concomitant]
  6. TRAZADONE [Concomitant]
  7. TIZANIDINE [Concomitant]
  8. IRON [Concomitant]
  9. CALCIUM 500 [Concomitant]
  10. VITAMIN D [Concomitant]
  11. ALLEGRA [Concomitant]
  12. CLARITIN [Concomitant]

REACTIONS (3)
  - Inappropriate schedule of drug administration [Unknown]
  - Alopecia [Unknown]
  - Flushing [Unknown]
